FAERS Safety Report 9473598 (Version 2)
Quarter: 2013Q3

REPORT INFORMATION
  Report Type: Spontaneous
  Country: US (occurrence: US)
  Receive Date: 20130823
  Receipt Date: 20130823
  Transmission Date: 20140515
  Serious: No
  Sender: FDA-Public Use
  Company Number: US-BRISTOL-MYERS SQUIBB COMPANY-16625683

PATIENT
  Age: 76 Year
  Sex: Male

DRUGS (22)
  1. SPRYCEL [Suspect]
     Indication: CHRONIC MYELOID LEUKAEMIA
     Route: 048
     Dates: start: 20120313, end: 20120316
  2. LOPRESSOR [Concomitant]
  3. COZAAR [Concomitant]
  4. MINOXIDIL [Concomitant]
  5. LASIX [Concomitant]
  6. PROBENECID [Concomitant]
  7. ALLOPURINOL [Concomitant]
  8. PREDNISONE [Concomitant]
  9. CELEXA [Concomitant]
  10. FLOMAX [Concomitant]
  11. COSOPT [Concomitant]
     Indication: GLAUCOMA
     Dosage: DROPS 2 TIMES A DAY EACH
     Route: 047
  12. FLONASE [Concomitant]
     Dosage: NASAL SPRAY
     Route: 045
  13. ANDRODERM [Concomitant]
     Dosage: ANDRODERM TESTOSTERONE PATCH?1 PATCH
  14. SYNTHROID [Concomitant]
  15. NYSTOP [Concomitant]
     Indication: RASH
     Dosage: NYSTOP POWDER 100000
  16. KETOCONAZOLE CREAM [Concomitant]
     Indication: TINEA PEDIS
     Dosage: 2%
  17. EXTRA-STRENGTH TYLENOL [Concomitant]
     Indication: PAIN
  18. IMODIUM [Concomitant]
     Indication: DIARRHOEA
     Dosage: DF= 1/2 PER DAY
  19. MULTIVITAMIN [Concomitant]
  20. CALCIUM + VITAMIN D [Concomitant]
     Dosage: VITMD:400 IU
  21. ASPIRIN [Concomitant]
  22. INTRON A [Concomitant]
     Dosage: 3 DF= 3 MILLION UNITS

REACTIONS (1)
  - Oedema peripheral [Recovered/Resolved]
